FAERS Safety Report 18955356 (Version 1)
Quarter: 2021Q1

REPORT INFORMATION
  Report Type: Report from Study
  Country: AT (occurrence: AT)
  Receive Date: 20210301
  Receipt Date: 20210301
  Transmission Date: 20210420
  Serious: Yes (Death, Other)
  Sender: FDA-Public Use
  Company Number: AT-SEATTLE GENETICS-2021SGN01196

PATIENT
  Sex: Male
  Weight: 107 kg

DRUGS (1)
  1. BRENTUXIMAB VEDOTIN?MPI [Suspect]
     Active Substance: BRENTUXIMAB VEDOTIN
     Indication: ANAPLASTIC LARGE-CELL LYMPHOMA
     Dosage: 180 MG
     Route: 048
     Dates: start: 20161018, end: 20180528

REACTIONS (3)
  - Hepatic failure [Fatal]
  - Sepsis [Fatal]
  - Intervertebral discitis [Recovered/Resolved]

NARRATIVE: CASE EVENT DATE: 20180104
